FAERS Safety Report 11572732 (Version 1)
Quarter: 2015Q3

REPORT INFORMATION
  Report Type: Spontaneous
  Country: US (occurrence: US)
  Receive Date: 20150916
  Receipt Date: 20150916
  Transmission Date: 20151125
  Serious: No
  Sender: FDA-Public Use
  Company Number: US-ELI_LILLY_AND_COMPANY-US200910004874

PATIENT
  Sex: Female

DRUGS (2)
  1. FORTEO [Suspect]
     Active Substance: TERIPARATIDE
     Dosage: UNK, UNK
     Dates: start: 2009
  2. FORTEO [Suspect]
     Active Substance: TERIPARATIDE
     Dates: start: 200807, end: 2009

REACTIONS (8)
  - Fatigue [Unknown]
  - Tooth disorder [Unknown]
  - Visual acuity reduced [Unknown]
  - Renal cyst [Unknown]
  - Nausea [Unknown]
  - Tachycardia [Unknown]
  - Thyroid cyst [Unknown]
  - Hepatic adenoma [Unknown]

NARRATIVE: CASE EVENT DATE: 200909
